FAERS Safety Report 17748864 (Version 7)
Quarter: 2021Q3

REPORT INFORMATION
  Report Type: Report from Study
  Country: None (occurrence: NL)
  Receive Date: 20200506
  Receipt Date: 20210722
  Transmission Date: 20211014
  Serious: Yes (Hospitalization)
  Sender: FDA-Public Use
  Company Number: NL-ABBVIE-19K-114-3013608-00

PATIENT
  Age: 61 Year
  Sex: Female
  Weight: 110 kg

DRUGS (20)
  1. DUODOPA [Suspect]
     Active Substance: CARBIDOPA\LEVODOPA
     Indication: PARKINSON^S DISEASE
     Dosage: MD 12.5 ML, CD 1.9 ML/H, ED 2.0 ML
     Route: 050
     Dates: start: 20191104
  2. SINEMET [Concomitant]
     Active Substance: CARBIDOPA\LEVODOPA
     Indication: PARKINSON^S DISEASE
     Dosage: 250 MG AT 4.00 HOUR
  3. METFORMIN [Concomitant]
     Active Substance: METFORMIN HYDROCHLORIDE
     Indication: PRODUCT USED FOR UNKNOWN INDICATION
     Dates: start: 20191121
  4. PRAVASTINE [Concomitant]
     Active Substance: PRAVASTATIN SODIUM
     Indication: PRODUCT USED FOR UNKNOWN INDICATION
  5. ROPINIROLE. [Concomitant]
     Active Substance: ROPINIROLE
     Indication: PARKINSON^S DISEASE
     Dosage: MGA
     Dates: start: 20191121
  6. CITALOPRAM [Concomitant]
     Active Substance: CITALOPRAM HYDROBROMIDE
     Indication: PRODUCT USED FOR UNKNOWN INDICATION
  7. DUODOPA [Suspect]
     Active Substance: CARBIDOPA\LEVODOPA
     Dosage: MD 11.5 ML CD 2.1 ML/H ED 4 ML CND 1.0 ML/H END 4.0 ML
     Route: 050
  8. INSULIN GLARGINE [Concomitant]
     Active Substance: INSULIN GLARGINE
     Indication: PRODUCT USED FOR UNKNOWN INDICATION
     Route: 058
  9. NAPROXEN. [Concomitant]
     Active Substance: NAPROXEN
     Indication: PRODUCT USED FOR UNKNOWN INDICATION
     Dosage: 2 TIMES DAILY IF NEEDED
  10. LEVODOPA/BENSERAZIDE DISPER [Concomitant]
     Indication: PRODUCT USED FOR UNKNOWN INDICATION
     Dosage: 100 / 25 MILLIGRAM?2 TIMES PER DAY 0.5 TABLET IN THE NIGHT
     Route: 065
     Dates: start: 20191121
  11. MOVICOLON [Concomitant]
     Active Substance: POLYETHYLENE GLYCOL 3350\POTASSIUM CHLORIDE\SODIUM BICARBONATE\SODIUM CHLORIDE
     Indication: ABNORMAL FAECES
     Dosage: IF NEEDED ONCE A DAY 1 SACHET
     Route: 048
     Dates: start: 20191121
  12. OXAZEPAM. [Concomitant]
     Active Substance: OXAZEPAM
     Indication: PRODUCT USED FOR UNKNOWN INDICATION
     Dosage: IF NEEDED, 2 TIMES PER DAY 0.5 TABLET
     Dates: start: 20191121
  13. LEVODOPA/CARBIDOPA [Concomitant]
     Active Substance: CARBIDOPA\LEVODOPA
     Indication: PRODUCT USED FOR UNKNOWN INDICATION
     Dosage: TALET MGA?200/50 MILLIGRAM?1 TIME PER DAY 1 TABLET
     Dates: start: 20191113
  14. ROPINIROL [Concomitant]
     Active Substance: ROPINIROLE
     Indication: PARKINSON^S DISEASE
  15. DUODOPA [Suspect]
     Active Substance: CARBIDOPA\LEVODOPA
     Dosage: MD 11.5 ML, CD 2.0 ML/H, ED 4.0 ML
     Route: 050
  16. OMEPRAZOL [Concomitant]
     Active Substance: OMEPRAZOLE
     Indication: PRODUCT USED FOR UNKNOWN INDICATION
     Route: 048
     Dates: start: 20191121
  17. MORPHINE [Concomitant]
     Active Substance: MORPHINE
     Indication: PAIN
     Route: 058
     Dates: start: 20191120, end: 20191121
  18. ATENOL [Concomitant]
     Active Substance: ATENOLOL
     Indication: PRODUCT USED FOR UNKNOWN INDICATION
  19. LEVODOPA/CARBIDOPA [Concomitant]
     Active Substance: CARBIDOPA\LEVODOPA
     Indication: PRODUCT USED FOR UNKNOWN INDICATION
     Dosage: GEL GASTRO ENT?25 / 5 MILLIGRAM/ MILILITER 100 MILILITER
     Route: 065
     Dates: start: 20191121
  20. PARACETAMOL [Concomitant]
     Active Substance: ACETAMINOPHEN
     Indication: PRODUCT USED FOR UNKNOWN INDICATION

REACTIONS (44)
  - Abdominal pain [Recovered/Resolved]
  - Abdominal pain [Recovered/Resolved]
  - Stress [Not Recovered/Not Resolved]
  - Impaired gastric emptying [Unknown]
  - Gait disturbance [Not Recovered/Not Resolved]
  - Depressed mood [Recovered/Resolved]
  - Diarrhoea [Recovered/Resolved]
  - Confusional state [Not Recovered/Not Resolved]
  - Depressed mood [Not Recovered/Not Resolved]
  - On and off phenomenon [Recovering/Resolving]
  - Depressed mood [Recovering/Resolving]
  - Limb operation [Not Recovered/Not Resolved]
  - Panic reaction [Not Recovered/Not Resolved]
  - Serum ferritin increased [Unknown]
  - Weight decreased [Recovered/Resolved]
  - Malaise [Unknown]
  - Stoma site infection [Recovered/Resolved]
  - Living in residential institution [Not Recovered/Not Resolved]
  - Vomiting [Recovered/Resolved]
  - Protein total increased [Unknown]
  - Fall [Not Recovered/Not Resolved]
  - Therapeutic response shortened [Recovered/Resolved]
  - Pallor [Not Recovered/Not Resolved]
  - Crying [Recovering/Resolving]
  - Transferrin decreased [Unknown]
  - Impaired quality of life [Unknown]
  - Tremor [Not Recovered/Not Resolved]
  - Dyskinesia [Not Recovered/Not Resolved]
  - Nausea [Recovered/Resolved]
  - Limb discomfort [Not Recovered/Not Resolved]
  - Muscular weakness [Not Recovered/Not Resolved]
  - Tension [Not Recovered/Not Resolved]
  - Psychiatric symptom [Not Recovered/Not Resolved]
  - Dyskinesia [Recovered/Resolved]
  - Stoma site erythema [Recovered/Resolved]
  - Abdominal pain [Not Recovered/Not Resolved]
  - Memory impairment [Not Recovered/Not Resolved]
  - Urinary tract infection [Not Recovered/Not Resolved]
  - Mood altered [Recovering/Resolving]
  - Procedural pain [Not Recovered/Not Resolved]
  - Therapeutic response shortened [Unknown]
  - Nausea [Not Recovered/Not Resolved]
  - Muscle rigidity [Not Recovered/Not Resolved]
  - Sleep disorder due to a general medical condition [Recovered/Resolved]

NARRATIVE: CASE EVENT DATE: 20191117
